FAERS Safety Report 6557685-3 (Version None)
Quarter: 2010Q1

REPORT INFORMATION
  Report Type: 
  Country: None (occurrence: None)
  Receive Date: 20100128
  Receipt Date: 20100128
  Transmission Date: 20100710
  Serious: Yes (Other)
  Sender: FDA-Public Use
  Company Number: None

PATIENT
  Sex: Female
  Weight: 81.6475 kg

DRUGS (2)
  1. CARBAMAZEPINE [Suspect]
     Indication: CONVULSION
     Dosage: 400 MG ONE QAM, TWO QPM P.O.
     Route: 048
     Dates: start: 20060101
  2. VALPROIC ACID [Suspect]
     Indication: CONVULSION
     Dosage: 500MG TID P.O.
     Route: 048
     Dates: start: 20060101

REACTIONS (1)
  - GRAND MAL CONVULSION [None]
